FAERS Safety Report 5036876-7 (Version None)
Quarter: 2006Q2

REPORT INFORMATION
  Report Type: 
  Country: None (occurrence: None)
  Receive Date: 20060626
  Receipt Date: 20060614
  Transmission Date: 20061013
  Serious: Yes (Life-Threatening, Hospitalization)
  Sender: FDA-Public Use
  Company Number: 2006MP000635

PATIENT
  Age: 80 Year
  Sex: Female

DRUGS (9)
  1. AGGRASTAT [Suspect]
     Indication: ACUTE CORONARY SYNDROME
     Dosage: IV
     Route: 042
     Dates: start: 20060419, end: 20060420
  2. ASPIRIN [Concomitant]
  3. CLOPIDOGREL BISULFATE [Concomitant]
  4. CRANOC [Concomitant]
  5. HEPARIN [Concomitant]
  6. ISOSORBIDE DINITRATE [Concomitant]
  7. LISINOPRIL [Concomitant]
  8. MOLSIDOMINE [Concomitant]
  9. LEVOTHYROXINE SODIUM [Concomitant]

REACTIONS (14)
  - ARTERIOSCLEROSIS CORONARY ARTERY [None]
  - BLOOD BILIRUBIN INCREASED [None]
  - BLOOD LACTATE DEHYDROGENASE INCREASED [None]
  - CORONARY ARTERY DISEASE [None]
  - CORONARY ARTERY STENOSIS [None]
  - GASTROINTESTINAL HAEMORRHAGE [None]
  - HAEMOGLOBIN DECREASED [None]
  - HAEMOLYTIC ANAEMIA [None]
  - HYPOKALAEMIA [None]
  - THROMBOCYTOPENIA [None]
  - TRANSFUSION REACTION [None]
  - URINARY TRACT INFECTION [None]
  - VESSEL PUNCTURE SITE HAEMATOMA [None]
  - VOMITING [None]
